FAERS Safety Report 14075547 (Version 1)
Quarter: 2017Q4

REPORT INFORMATION
  Report Type: Spontaneous
  Country: US (occurrence: US)
  Receive Date: 20171010
  Receipt Date: 20171010
  Transmission Date: 20180321
  Serious: No
  Sender: FDA-Public Use
  Company Number: US-MYLANLABS-2016M1054522

PATIENT
  Sex: Female
  Weight: 99.77 kg

DRUGS (2)
  1. METOPROLOL TARTRATE TABLETS USP [Suspect]
     Active Substance: METOPROLOL TARTRATE
     Indication: HYPERTENSION
     Dosage: 25 MG, QD
     Route: 048
     Dates: start: 201606
  2. LEVOTHYROXINE. [Concomitant]
     Active Substance: LEVOTHYROXINE
     Indication: PRODUCT USED FOR UNKNOWN INDICATION
     Dosage: UNK, AM

REACTIONS (6)
  - Dysphonia [Unknown]
  - Reaction to excipient [Unknown]
  - Migraine [Unknown]
  - Nightmare [Unknown]
  - Dyspnoea [Unknown]
  - Drug effect variable [Unknown]

NARRATIVE: CASE EVENT DATE: 2016
